FAERS Safety Report 25708220 (Version 1)
Quarter: 2025Q3

REPORT INFORMATION
  Report Type: Spontaneous
  Country: US (occurrence: US)
  Receive Date: 20250821
  Receipt Date: 20250821
  Transmission Date: 20251020
  Serious: Yes (Other)
  Sender: AXSOME THERAPEUTICS
  Company Number: US-AXS-AXS202508-001411

PATIENT
  Sex: Female

DRUGS (1)
  1. AUVELITY [Suspect]
     Active Substance: BUPROPION HYDROCHLORIDE\DEXTROMETHORPHAN HYDROBROMIDE
     Indication: Product used for unknown indication
     Route: 050

REACTIONS (3)
  - Suicidal ideation [Unknown]
  - Insomnia [Unknown]
  - Drug ineffective [Unknown]
